FAERS Safety Report 5817328-0 (Version None)
Quarter: 2008Q3

REPORT INFORMATION
  Report Type: 
  Country: None (occurrence: None)
  Receive Date: 20080715
  Receipt Date: 20080703
  Transmission Date: 20090109
  Serious: Yes (Death)
  Sender: FDA-Public Use
  Company Number: US023965

PATIENT
  Age: 44 Year
  Sex: Female

DRUGS (1)
  1. MODAFINIL [Suspect]
     Dosage: ORAL
     Route: 048
     Dates: start: 20071101, end: 20071227

REACTIONS (1)
  - COMPLETED SUICIDE [None]
